FAERS Safety Report 10930732 (Version 1)
Quarter: 2015Q1

REPORT INFORMATION
  Report Type: Spontaneous
  Country: None (occurrence: None)
  Receive Date: 20150318
  Receipt Date: 20150318
  Transmission Date: 20150721
  Serious: No
  Sender: FDA-Public Use
  Company Number: None

PATIENT
  Age: 20 Year
  Sex: Female

DRUGS (3)
  1. NAPROXEN. [Concomitant]
     Active Substance: NAPROXEN
  2. PENICILLIN V POTASSIUM. [Suspect]
     Active Substance: PENICILLIN V POTASSIUM
     Dosage: 1TAB
     Route: 048
  3. ENPRESSE 50-30 [Concomitant]

REACTIONS (4)
  - Rash [None]
  - Oropharyngeal pain [None]
  - Urticaria [None]
  - Paranasal sinus discomfort [None]

NARRATIVE: CASE EVENT DATE: 20140226
